FAERS Safety Report 4474186-7 (Version None)
Quarter: 2004Q4

REPORT INFORMATION
  Report Type: 
  Country: None (occurrence: None)
  Receive Date: 20041008
  Receipt Date: 20040107
  Transmission Date: 20050328
  Serious: Yes (Death, Other)
  Sender: FDA-Public Use
  Company Number: RB-419-2004

PATIENT
  Age: 91 Year
  Sex: Male

DRUGS (1)
  1. BUPRENORPHINE HCL [Suspect]
     Dosage: 32 MG  PO
     Route: 048
     Dates: start: 20031201, end: 20031216

REACTIONS (3)
  - INJURY [None]
  - MEDICATION ERROR [None]
  - PNEUMONIA [None]
